FAERS Safety Report 6667896-4 (Version None)
Quarter: 2010Q2

REPORT INFORMATION
  Report Type: 
  Country: None (occurrence: None)
  Receive Date: 20100405
  Receipt Date: 20100324
  Transmission Date: 20101027
  Serious: Yes (Other)
  Sender: FDA-Public Use
  Company Number: JP-PFIZER INC-2010039861

PATIENT
  Age: 46 Year
  Sex: Female

DRUGS (2)
  1. ZOLOFT [Suspect]
     Route: 048
     Dates: start: 20100222
  2. RIZE [Concomitant]
     Route: 048
     Dates: start: 20100222

REACTIONS (1)
  - CHEST DISCOMFORT [None]
